FAERS Safety Report 5642759-1 (Version None)
Quarter: 2008Q1

REPORT INFORMATION
  Report Type: 
  Country: None (occurrence: None)
  Receive Date: 20080227
  Receipt Date: 20080227
  Transmission Date: 20080703
  Serious: Yes (Other)
  Sender: FDA-Public Use
  Company Number: None

PATIENT
  Age: 72 Year
  Sex: Female
  Weight: 74.8435 kg

DRUGS (1)
  1. CARISOPRODOL [Suspect]
     Indication: MUSCLE RELAXANT THERAPY
     Dosage: TAKE 1 TABLET THREE TIMES A DAY AS NEEDED

REACTIONS (3)
  - LIP SWELLING [None]
  - NONSPECIFIC REACTION [None]
  - OEDEMA PERIPHERAL [None]
